FAERS Safety Report 7293536-X (Version None)
Quarter: 2011Q1

REPORT INFORMATION
  Report Type: 
  Country: None (occurrence: None)
  Receive Date: 20110204
  Receipt Date: 20110120
  Transmission Date: 20110831
  Serious: Yes (Death, Hospitalization)
  Sender: FDA-Public Use
  Company Number: 2011000364

PATIENT
  Age: 60 Year
  Sex: Male

DRUGS (2)
  1. PANOBINOSTAT (TABLET) [Suspect]
     Indication: HEAD AND NECK CANCER
     Dosage: (30 MG, QD), ORAL
     Route: 048
     Dates: start: 20101005, end: 20101213
  2. ERLOTINIB HYDROCHLORIDE [Suspect]
     Indication: HEAD AND NECK CANCER
     Dosage: (100 MG, QD), ORAL
     Route: 048
     Dates: start: 20100927, end: 20101215

REACTIONS (3)
  - NEOPLASM MALIGNANT [None]
  - LOCAL SWELLING [None]
  - SQUAMOUS CELL CARCINOMA [None]
